FAERS Safety Report 4435734-6 (Version None)
Quarter: 2004Q3

REPORT INFORMATION
  Report Type: 
  Country: None (occurrence: None)
  Receive Date: 20040826
  Receipt Date: 20040813
  Transmission Date: 20050211
  Serious: Yes (Hospitalization, Other)
  Sender: FDA-Public Use
  Company Number: 2004055863

PATIENT
  Age: 50 Year
  Sex: Male

DRUGS (11)
  1. TIKOSYN [Suspect]
     Indication: ARRHYTHMIA
     Dosage: (2 IN 1 D)
     Dates: start: 20040301
  2. PREDNISONE [Concomitant]
  3. PANTOPRAZOLE (PANTOPRAZOLE) [Concomitant]
  4. DILTIAZEM [Concomitant]
  5. GUAIFENESIN (GUAIFENESIN) [Concomitant]
  6. TEMAZEPAM [Concomitant]
  7. ALL OTHER THERAPEUTIC PRODUCTS (ALL OTHER THERAPEUTIC PRODUCTS) [Concomitant]
  8. MONTELUKAST (MONTELUKAST) [Concomitant]
  9. LEVOSALBUTAMOL (LEVOSALBUTAMOL) [Concomitant]
  10. AZITHROMYCIN [Concomitant]
  11. DOCUSATE (DOCUSATE) [Concomitant]

REACTIONS (9)
  - ABNORMAL BEHAVIOUR [None]
  - DEVICE FAILURE [None]
  - EXCITABILITY [None]
  - FLATULENCE [None]
  - GASTRIC DISORDER [None]
  - HALLUCINATION, VISUAL [None]
  - HEART RATE INCREASED [None]
  - HERPES ZOSTER [None]
  - LABORATORY TEST ABNORMAL [None]
